FAERS Safety Report 13875500 (Version 1)
Quarter: 2017Q3

REPORT INFORMATION
  Report Type: Spontaneous
  Country: JP (occurrence: JP)
  Receive Date: 20170817
  Receipt Date: 20170817
  Transmission Date: 20171127
  Serious: Yes (Hospitalization, Other)
  Sender: FDA-Public Use
  Company Number: JP-LUPIN PHARMACEUTICALS INC.-2016-03040

PATIENT
  Age: 9 Year
  Sex: Male

DRUGS (10)
  1. OFLOXACIN. [Suspect]
     Active Substance: OFLOXACIN
     Indication: EYELID OEDEMA
  2. OFLOXACIN. [Suspect]
     Active Substance: OFLOXACIN
     Indication: EYE PRURITUS
     Dosage: UNK UNK,UNK,UNKNOWN
     Route: 065
  3. VOLTAREN [Concomitant]
     Active Substance: DICLOFENAC SODIUM
     Indication: EYELID OEDEMA
  4. LEVOFLOXACIN. [Suspect]
     Active Substance: LEVOFLOXACIN
     Indication: EYELID OEDEMA
  5. LEVOFLOXACIN. [Suspect]
     Active Substance: LEVOFLOXACIN
     Indication: EYE PRURITUS
     Dosage: UNK UNK,UNK,UNKNOWN
     Route: 048
  6. VOLTAREN [Concomitant]
     Active Substance: DICLOFENAC SODIUM
     Indication: EYE PRURITUS
     Dosage: UNK UNK,UNK,UNKNOWN
     Route: 048
  7. LEVOFLOXACIN. [Suspect]
     Active Substance: LEVOFLOXACIN
     Indication: EYELID OEDEMA
  8. LEVOFLOXACIN. [Suspect]
     Active Substance: LEVOFLOXACIN
     Indication: EYE PRURITUS
     Dosage: UNK UNK,UNK,UNKNOWN
     Route: 065
  9. VOLTAREN [Concomitant]
     Active Substance: DICLOFENAC SODIUM
     Indication: EYE PRURITUS
     Dosage: UNK UNK,UNK,UNKNOWN
     Route: 065
  10. VOLTAREN [Concomitant]
     Active Substance: DICLOFENAC SODIUM
     Indication: EYELID OEDEMA

REACTIONS (1)
  - Angioedema [Unknown]
